FAERS Safety Report 20491338 (Version 2)
Quarter: 2022Q1

REPORT INFORMATION
  Report Type: Other
  Country: US (occurrence: None)
  Receive Date: 20220218
  Receipt Date: 20220221
  Transmission Date: 20220424
  Serious: Yes (Death)
  Sender: FDA-Public Use
  Company Number: US-ROCHE-3028976

PATIENT
  Sex: Female

DRUGS (2)
  1. ESBRIET [Suspect]
     Active Substance: PIRFENIDONE
     Indication: Pneumonia
     Dosage: DAY 1-7TAKE 1 TABLET 3 TIMES DAILY, DAY 9-14 TAKE 2 TABLETS 3 TIMES DAILY, DAY 15- TAKE 3 TABLETS 3
     Route: 048
  2. ESBRIET [Suspect]
     Active Substance: PIRFENIDONE
     Indication: Idiopathic interstitial pneumonia

REACTIONS (2)
  - Death [Fatal]
  - Off label use [Unknown]
